FAERS Safety Report 5759208-5 (Version None)
Quarter: 2008Q2

REPORT INFORMATION
  Report Type: 
  Country: None (occurrence: None)
  Receive Date: 20080604
  Receipt Date: 20080523
  Transmission Date: 20081010
  Serious: Yes (Other)
  Sender: FDA-Public Use
  Company Number: US-PFIZER INC-2008045067

PATIENT
  Sex: Male
  Weight: 77.1 kg

DRUGS (4)
  1. DILANTIN [Suspect]
     Indication: EPILEPSY
  2. DILANTIN [Suspect]
     Indication: GRAND MAL CONVULSION
  3. MEBARAL [Concomitant]
  4. DIAMOX SRC [Concomitant]

REACTIONS (4)
  - CORONARY ARTERY DISEASE [None]
  - DRUG LEVEL DECREASED [None]
  - MACULAR DEGENERATION [None]
  - VISION BLURRED [None]
